FAERS Safety Report 9003602 (Version 1)
Quarter: 2013Q1

REPORT INFORMATION
  Report Type: Spontaneous
  Country: US (occurrence: US)
  Receive Date: 20130108
  Receipt Date: 20130108
  Transmission Date: 20140127
  Serious: No
  Sender: FDA-Public Use
  Company Number: US-PFIZER INC-2013003826

PATIENT
  Age: 78 Year
  Sex: Male
  Weight: 77.1 kg

DRUGS (9)
  1. VIAGRA [Suspect]
     Indication: SEXUAL DYSFUNCTION
     Dosage: 50 MG, AS NEEDED
  2. VIAGRA [Suspect]
     Dosage: 100 MG, AS NEEDED
  3. INDAPAMIDE [Concomitant]
     Indication: BLOOD PRESSURE ABNORMAL
     Dosage: 1.5 MG, DAILY
  4. RED YEAST RICE [Concomitant]
     Indication: BLOOD CHOLESTEROL ABNORMAL
     Dosage: UNK
  5. ASPIRIN [Concomitant]
     Dosage: 81 MG, DAILY
  6. ALESSE [Concomitant]
     Dosage: UNKNOWN DOSE TWO PILLS DAILY
  7. COENZYME Q10 [Concomitant]
     Dosage: UNK, DAILY
  8. FISH OIL [Concomitant]
     Dosage: UNK
  9. VITAMINS [Concomitant]
     Dosage: UNK

REACTIONS (1)
  - Drug ineffective [Unknown]
